FAERS Safety Report 25982982 (Version 1)
Quarter: 2025Q4

REPORT INFORMATION
  Report Type: Spontaneous
  Country: US (occurrence: US)
  Receive Date: 20251031
  Receipt Date: 20251031
  Transmission Date: 20260117
  Serious: No
  Sender: GLAND PHARMA
  Company Number: US-GLANDPHARMA-US-2025GLNSPO01896

PATIENT
  Sex: Male

DRUGS (6)
  1. BROMFENAC OPHTHALMIC SOLUTION 0.09% [Suspect]
     Active Substance: BROMFENAC SODIUM
     Indication: Dermatitis atopic
     Route: 065
  2. PREDNISOLONE [Suspect]
     Active Substance: PREDNISOLONE
     Indication: Dermatitis atopic
     Route: 065
  3. DUREZOL [Suspect]
     Active Substance: DIFLUPREDNATE
     Indication: Dermatitis atopic
     Route: 065
  4. COSOPT [Suspect]
     Active Substance: DORZOLAMIDE HYDROCHLORIDE\TIMOLOL MALEATE
     Indication: Dermatitis atopic
     Route: 065
  5. PREDNISONE [Concomitant]
     Active Substance: PREDNISONE
     Indication: Product used for unknown indication
     Route: 065
     Dates: start: 202209
  6. PREDNISONE [Concomitant]
     Active Substance: PREDNISONE
     Route: 065
     Dates: start: 202301

REACTIONS (4)
  - Dermatitis atopic [Unknown]
  - Skin discomfort [Unknown]
  - Pruritus [Unknown]
  - Product use in unapproved indication [Unknown]

NARRATIVE: CASE EVENT DATE: 20250501
